FAERS Safety Report 6663366-8 (Version None)
Quarter: 2010Q2

REPORT INFORMATION
  Report Type: 
  Country: None (occurrence: None)
  Receive Date: 20100401
  Receipt Date: 20100319
  Transmission Date: 20101027
  Serious: Yes (Other)
  Sender: FDA-Public Use
  Company Number: UA-BAYER-200818867GPV

PATIENT
  Age: 31 Year
  Sex: Male
  Weight: 66 kg

DRUGS (4)
  1. CAMPATH [Suspect]
     Indication: MULTIPLE SCLEROSIS
     Dosage: MONTH 0
     Route: 042
     Dates: start: 20080519, end: 20080519
  2. CAMPATH [Suspect]
     Dosage: MONTH 12
     Route: 042
     Dates: start: 20090518, end: 20090520
  3. METHYLPREDNISOLONE [Concomitant]
     Indication: PREMEDICATION
     Route: 042
     Dates: start: 20080519, end: 20080519
  4. METHYLPREDNISOLONE [Concomitant]
     Route: 042
     Dates: start: 20090518, end: 20090520

REACTIONS (3)
  - ANAPHYLACTIC SHOCK [None]
  - CIRCULATORY COLLAPSE [None]
  - URINARY INCONTINENCE [None]
